FAERS Safety Report 24388820 (Version 1)
Quarter: 2024Q4

REPORT INFORMATION
  Report Type: Spontaneous
  Country: US (occurrence: None)
  Receive Date: 20241002
  Receipt Date: 20241002
  Transmission Date: 20250115
  Serious: No
  Sender: Public
  Company Number: None

PATIENT
  Age: 52 Year
  Sex: Female
  Weight: 45.9 kg

DRUGS (8)
  1. JEUVEAU [Suspect]
     Active Substance: PRABOTULINUMTOXINA-XVFS
     Indication: Skin wrinkling
     Route: 058
     Dates: start: 20240928, end: 20240928
  2. .birth control [Concomitant]
  3. birth control [Concomitant]
  4. TYRVAYA [Concomitant]
     Active Substance: VARENICLINE TARTRATE
  5. RESTASIS [Concomitant]
     Active Substance: CYCLOSPORINE
  6. ORACEA [Concomitant]
     Active Substance: DOXYCYCLINE
  7. hydro eye vitamins [Concomitant]
  8. b12 [Concomitant]

REACTIONS (2)
  - Rash pruritic [None]
  - Rash [None]

NARRATIVE: CASE EVENT DATE: 20240930
